FAERS Safety Report 25918866 (Version 2)
Quarter: 2025Q4

REPORT INFORMATION
  Report Type: Spontaneous
  Country: US (occurrence: US)
  Receive Date: 20251014
  Receipt Date: 20251020
  Transmission Date: 20260118
  Serious: Yes (Hospitalization, Disabling, Other)
  Sender: AMERICAN REGENT
  Company Number: US-AMERICAN REGENT INC-2025003753

PATIENT
  Sex: Female

DRUGS (1)
  1. BETAMETHASONE ACETATE\BETAMETHASONE SODIUM PHOSPHATE [Suspect]
     Active Substance: BETAMETHASONE ACETATE\BETAMETHASONE SODIUM PHOSPHATE
     Indication: Product used for unknown indication
     Dosage: UNK
     Route: 008
     Dates: start: 20250807, end: 20250807

REACTIONS (5)
  - Migraine [Not Recovered/Not Resolved]
  - Blood sodium decreased [Unknown]
  - Malaise [Not Recovered/Not Resolved]
  - Product quality issue [Unknown]
  - Incorrect route of product administration [Unknown]

NARRATIVE: CASE EVENT DATE: 20250101
